FAERS Safety Report 8022966-3 (Version None)
Quarter: 2012Q1

REPORT INFORMATION
  Report Type: 
  Country: None (occurrence: None)
  Receive Date: 20120104
  Receipt Date: 20111228
  Transmission Date: 20120608
  Serious: Yes (Other)
  Sender: FDA-Public Use
  Company Number: GB-ABBOTT-11P-167-0887202-00

PATIENT
  Age: 69 Year
  Sex: Female

DRUGS (10)
  1. CARBOCISTEINE [Concomitant]
     Indication: PRODUCT USED FOR UNKNOWN INDICATION
     Dates: start: 20111209
  2. FLUTICASONE PROPIONATE/SALMETEROL [Suspect]
     Indication: ASTHMA
     Dosage: 125 EVOHALER
     Dates: start: 20110908
  3. AZITHROMYCIN [Suspect]
     Indication: RESPIRATORY TRACT INFECTION
     Route: 065
     Dates: start: 20111024
  4. PREDNISOLONE [Suspect]
     Dates: start: 20111111
  5. FOSTAIR [Concomitant]
     Indication: PRODUCT USED FOR UNKNOWN INDICATION
  6. FLUTICASONE PROPIONATE/SALMETEROL [Suspect]
  7. PREDNISOLONE [Suspect]
     Indication: PRODUCT USED FOR UNKNOWN INDICATION
     Route: 065
     Dates: start: 20111024
  8. CLARITHROMYCIN [Suspect]
     Indication: RESPIRATORY TRACT INFECTION
     Route: 065
     Dates: start: 20111017
  9. CLARITHROMYCIN [Suspect]
     Dates: start: 20111111
  10. PREDNISOLONE [Suspect]
     Dates: start: 20111026

REACTIONS (5)
  - ORAL CANDIDIASIS [None]
  - CONDITION AGGRAVATED [None]
  - DRUG INEFFECTIVE [None]
  - CIRCULATORY COLLAPSE [None]
  - RESPIRATORY TRACT INFECTION FUNGAL [None]
